FAERS Safety Report 8396890-0 (Version None)
Quarter: 2012Q2

REPORT INFORMATION
  Report Type: 
  Country: None (occurrence: None)
  Receive Date: 20120530
  Receipt Date: 20120521
  Transmission Date: 20120825
  Serious: Yes (Hospitalization)
  Sender: FDA-Public Use
  Company Number: US-FRI-1000029086

PATIENT
  Sex: Female

DRUGS (11)
  1. SAVELLA [Suspect]
     Indication: FIBROMYALGIA
     Dosage: 12.5 MG
     Route: 048
     Dates: start: 20110201, end: 20110201
  2. CYMBALTA [Concomitant]
     Dates: end: 20110101
  3. TOPAMAX [Concomitant]
     Indication: MIGRAINE
  4. SAVELLA [Suspect]
     Dosage: 50 MG
     Route: 048
     Dates: start: 20110101, end: 20110101
  5. SAVELLA [Suspect]
     Dosage: 100 MG
     Route: 048
     Dates: start: 20110101, end: 20120406
  6. SAVELLA [Suspect]
     Dosage: 12.5 MG
     Route: 048
     Dates: start: 20120512, end: 20120512
  7. SAVELLA [Suspect]
     Dosage: 50 MG
     Route: 048
     Dates: start: 20120519
  8. CYMBALTA [Concomitant]
     Dates: start: 20120401, end: 20120501
  9. SAVELLA [Suspect]
     Dosage: 25 MG
     Route: 048
     Dates: start: 20110201, end: 20110101
  10. SAVELLA [Suspect]
     Dosage: 50 MG
     Route: 048
     Dates: start: 20120515, end: 20120518
  11. SAVELLA [Suspect]
     Dosage: 25 MG
     Route: 048
     Dates: start: 20120513, end: 20120514

REACTIONS (2)
  - SIMPLE PARTIAL SEIZURES [None]
  - MIGRAINE [None]
